FAERS Safety Report 4423139-3 (Version None)
Quarter: 2004Q3

REPORT INFORMATION
  Report Type: 
  Country: None (occurrence: None)
  Receive Date: 20040805
  Receipt Date: 20040728
  Transmission Date: 20050211
  Serious: Yes (Death)
  Sender: FDA-Public Use
  Company Number: NSADSS2002024415

PATIENT
  Age: 82 Year
  Sex: Male

DRUGS (6)
  1. CISAPRIDE (CISAPRIDE) TABLETS [Suspect]
     Indication: IMPAIRED GASTRIC EMPTYING
     Dosage: 10 MG, 4 IN 1 DAY, ORAL
     Route: 048
     Dates: start: 20010302, end: 20020717
  2. PROAMATINE [Concomitant]
  3. PLAVIX [Concomitant]
  4. ACIPHEX [Concomitant]
  5. MULTI-VITAMIN (MULTIVITAMINS) [Concomitant]
  6. LANOXIN [Concomitant]

REACTIONS (2)
  - GASTRIC CANCER RECURRENT [None]
  - SMALL INTESTINAL OBSTRUCTION [None]
